FAERS Safety Report 11003387 (Version 4)
Quarter: 2015Q2

REPORT INFORMATION
  Report Type: Spontaneous
  Country: JP (occurrence: JP)
  Receive Date: 20150409
  Receipt Date: 20150619
  Transmission Date: 20150821
  Serious: Yes (Death, Hospitalization, Other)
  Sender: FDA-Public Use
  Company Number: JP-ROCHE-1561571

PATIENT
  Age: 51 Year
  Sex: Female
  Weight: 97 kg

DRUGS (12)
  1. XOLAIR [Suspect]
     Active Substance: OMALIZUMAB
     Indication: ASTHMA
     Route: 058
     Dates: start: 20090713
  2. SULFAMETHOXAZOLE AND TRIMETHOPRIM [Concomitant]
     Active Substance: SULFAMETHOXAZOLE\TRIMETHOPRIM
     Route: 065
     Dates: start: 20071002, end: 20150222
  3. THEO-DUR [Concomitant]
     Active Substance: THEOPHYLLINE ANHYDROUS
     Route: 065
     Dates: start: 20091002, end: 20150222
  4. THEOPHYLLINE [Concomitant]
     Active Substance: THEOPHYLLINE ANHYDROUS
  5. SOL-MELCORT [Concomitant]
     Active Substance: METHYLPREDNISOLONE SODIUM SUCCINATE
     Route: 065
     Dates: start: 20150222
  6. SINGULAIR [Concomitant]
     Active Substance: MONTELUKAST SODIUM
     Route: 065
     Dates: start: 20071002, end: 20150222
  7. HUMULIN N INSULIN [Concomitant]
     Route: 065
     Dates: start: 20150222
  8. VEEN-F [Concomitant]
     Route: 065
     Dates: start: 20150219
  9. TAMIFLU [Concomitant]
     Active Substance: OSELTAMIVIR PHOSPHATE
  10. MAGNESIUM SULFATE. [Concomitant]
     Active Substance: MAGNESIUM SULFATE
     Route: 065
     Dates: start: 20150126, end: 20150126
  11. FLUTIFORM [Concomitant]
     Active Substance: FLUTICASONE PROPIONATE\FORMOTEROL FUMARATE
     Route: 065
     Dates: start: 20141216, end: 20150222
  12. CLARITHROMYCIN. [Concomitant]
     Active Substance: CLARITHROMYCIN
     Route: 065
     Dates: start: 20091002, end: 20150222

REACTIONS (15)
  - Status asthmaticus [Fatal]
  - Panic attack [Unknown]
  - Bradycardia [Unknown]
  - Infection [Unknown]
  - Atrial fibrillation [Unknown]
  - Back pain [Recovering/Resolving]
  - Tachycardia [Unknown]
  - Respiratory failure [Fatal]
  - Depressed level of consciousness [Fatal]
  - Discomfort [Unknown]
  - Influenza [Unknown]
  - Asthma [Fatal]
  - Respiratory tract infection [Recovering/Resolving]
  - Hypercapnia [Unknown]
  - Hypophagia [Not Recovered/Not Resolved]

NARRATIVE: CASE EVENT DATE: 20141222
